FAERS Safety Report 21620534 (Version 12)
Quarter: 2023Q2

REPORT INFORMATION
  Report Type: Report from Study
  Country: US (occurrence: US)
  Receive Date: 20221121
  Receipt Date: 20230623
  Transmission Date: 20230721
  Serious: No
  Sender: FDA-Public Use
  Company Number: US-002147023-NVSC2022US261257

PATIENT
  Sex: Female

DRUGS (1)
  1. KESIMPTA [Suspect]
     Active Substance: OFATUMUMAB
     Indication: Multiple sclerosis
     Dosage: UNK
     Route: 065

REACTIONS (11)
  - Skin discolouration [Unknown]
  - Influenza like illness [Unknown]
  - Myalgia [Unknown]
  - Oropharyngeal pain [Unknown]
  - Increased tendency to bruise [Recovered/Resolved]
  - Pain [Unknown]
  - Weight increased [Unknown]
  - Paraesthesia [Unknown]
  - Injection site haemorrhage [Unknown]
  - Injection site pain [Unknown]
  - Injection site extravasation [Unknown]
